FAERS Safety Report 19322817 (Version 2)
Quarter: 2021Q2

REPORT INFORMATION
  Report Type: Spontaneous
  Country: GB (occurrence: GB)
  Receive Date: 20210528
  Receipt Date: 20210604
  Transmission Date: 20210717
  Serious: Yes (Other)
  Sender: FDA-Public Use
  Company Number: GB-ADVANZ PHARMA-202105003843

PATIENT

DRUGS (2)
  1. PREDNISOLONE. [Suspect]
     Active Substance: PREDNISOLONE
     Indication: HYPOGLYCAEMIA
     Dosage: UNK
  2. PREDNISOLONE. [Suspect]
     Active Substance: PREDNISOLONE
     Dosage: LOW?DOSE PRE?BED

REACTIONS (2)
  - Condition aggravated [Unknown]
  - Hyperglycaemia [Unknown]
